FAERS Safety Report 16493404 (Version 2)
Quarter: 2019Q3

REPORT INFORMATION
  Report Type: Report from Study
  Country: US (occurrence: US)
  Receive Date: 20190628
  Receipt Date: 20190821
  Transmission Date: 20191004
  Serious: Yes (Hospitalization)
  Sender: FDA-Public Use
  Company Number: PHEH2019US027095

PATIENT
  Age: 49 Year
  Sex: Male

DRUGS (1)
  1. COSENTYX [Suspect]
     Active Substance: SECUKINUMAB
     Indication: PSORIASIS
     Dosage: 300 MG, QW FOR 5 WEEKS THEN QMO
     Route: 058
     Dates: start: 20190614

REACTIONS (4)
  - Wrong technique in product usage process [Recovered/Resolved]
  - Chest pain [Unknown]
  - Injection site pain [Recovered/Resolved]
  - Arterial occlusive disease [Unknown]

NARRATIVE: CASE EVENT DATE: 20190715
